FAERS Safety Report 8963100 (Version 1)
Quarter: 2012Q4

REPORT INFORMATION
  Report Type: 
  Country: US (occurrence: US)
  Receive Date: 20121213
  Receipt Date: 20121213
  Transmission Date: 20130627
  Serious: Yes (Other)
  Sender: FDA-Public Use
  Company Number: US-TEVA-355170USA

PATIENT
  Age: 27 Year
  Sex: Female

DRUGS (2)
  1. CLARAVIS [Suspect]
     Dosage: 40 Milligram Daily;
     Route: 048
  2. DAPSONE [Concomitant]

REACTIONS (2)
  - Suicidal ideation [Recovered/Resolved]
  - Delusion [Recovered/Resolved]
